FAERS Safety Report 5215276-0 (Version None)
Quarter: 2006Q4

REPORT INFORMATION
  Report Type: 
  Country: None (occurrence: None)
  Receive Date: 20061122
  Receipt Date: 20060217
  Transmission Date: 20070319
  Serious: Yes (Other)
  Sender: FDA-Public Use
  Company Number: HQWYE162716MAR05

PATIENT
  Age: 50 Year
  Sex: Female
  Weight: 82.63 kg

DRUGS (4)
  1. PREMARIN [Suspect]
     Indication: GENITAL PRURITUS FEMALE
     Dosage: 0.625 GRAM DAILY, VAGINAL
     Route: 067
     Dates: start: 19940101, end: 19990101
  2. PREMARIN [Suspect]
     Indication: VAGINAL BURNING SENSATION
     Dosage: 0.625 GRAM DAILY, VAGINAL
     Route: 067
     Dates: start: 19940101, end: 19990101
  3. CYCRIN [Suspect]
     Indication: HORMONE REPLACEMENT THERAPY
  4. PREMARIN [Suspect]
     Indication: OESTROGEN REPLACEMENT THERAPY

REACTIONS (1)
  - BREAST CANCER [None]
